FAERS Safety Report 6497313-9 (Version None)
Quarter: 2009Q4

REPORT INFORMATION
  Report Type: 
  Country: None (occurrence: None)
  Receive Date: 20091215
  Receipt Date: 20090901
  Transmission Date: 20100525
  Serious: No
  Sender: FDA-Public Use
  Company Number: A0806009A

PATIENT
  Sex: Male

DRUGS (1)
  1. AVODART [Suspect]
     Indication: URINARY TRACT DISORDER

REACTIONS (4)
  - ERECTILE DYSFUNCTION [None]
  - ILL-DEFINED DISORDER [None]
  - ORGASMIC SENSATION DECREASED [None]
  - PENIS DEVIATION [None]
